FAERS Safety Report 6149131-9 (Version None)
Quarter: 2009Q2

REPORT INFORMATION
  Report Type: 
  Country: None (occurrence: None)
  Receive Date: 20090407
  Receipt Date: 20090325
  Transmission Date: 20091009
  Serious: Yes (Other)
  Sender: FDA-Public Use
  Company Number: 1000005571

PATIENT
  Age: 23 Year
  Sex: Female

DRUGS (5)
  1. MILNACIPRAN (MILNACIPRAN HYDROCHLORIDE) (TABLETS) [Suspect]
     Indication: DEPRESSION
     Dosage: 50 MG (50 MG,1 IN 1 D),ORAL
     Route: 048
     Dates: start: 20081216, end: 20090301
  2. PAROXETINE HYDROCHLORIDE [Concomitant]
  3. TRIAZOLAM [Concomitant]
  4. TEPRENONE [Concomitant]
  5. FAMOTIDINE [Concomitant]

REACTIONS (1)
  - URINARY RETENTION [None]
